FAERS Safety Report 23742570 (Version 1)
Quarter: 2024Q2

REPORT INFORMATION
  Report Type: Spontaneous
  Country: VN (occurrence: VN)
  Receive Date: 20240415
  Receipt Date: 20240415
  Transmission Date: 20240716
  Serious: Yes (Life-Threatening)
  Sender: FDA-Public Use
  Company Number: VN-GE HEALTHCARE-2024CSU003721

PATIENT
  Age: 68 Year
  Sex: Female

DRUGS (1)
  1. OMNIPAQUE [Suspect]
     Active Substance: IOHEXOL
     Indication: Computerised tomogram thorax
     Dosage: 80 ML, TOTAL
     Route: 042
     Dates: start: 20240410, end: 20240410

REACTIONS (6)
  - Feeling abnormal [Recovering/Resolving]
  - Blood pressure immeasurable [Recovering/Resolving]
  - Communication disorder [Recovering/Resolving]
  - Dyspnoea [Recovering/Resolving]
  - Chest discomfort [Recovering/Resolving]
  - Blood pressure decreased [Recovering/Resolving]

NARRATIVE: CASE EVENT DATE: 20240410
